FAERS Safety Report 6725570-X (Version None)
Quarter: 2010Q2

REPORT INFORMATION
  Report Type: 
  Country: None (occurrence: None)
  Receive Date: 20100514
  Receipt Date: 20100504
  Transmission Date: 20101027
  Serious: Yes (Death, Hospitalization)
  Sender: FDA-Public Use
  Company Number: SE-PFIZER INC-2010055974

PATIENT
  Age: 75 Year
  Sex: Female

DRUGS (2)
  1. PREDNISOLONE [Suspect]
     Indication: MYCOSIS FUNGOIDES
     Dosage: 20 MG DAILY
     Route: 048
     Dates: start: 20091101
  2. METHOTREXATE [Suspect]
     Indication: MYCOSIS FUNGOIDES
     Dosage: 15 MG, WEEKLY
     Dates: start: 20100105

REACTIONS (1)
  - LEUKOPENIA [None]
